FAERS Safety Report 7517847-5 (Version None)
Quarter: 2011Q2

REPORT INFORMATION
  Report Type: 
  Country: None (occurrence: None)
  Receive Date: 20110602
  Receipt Date: 20110527
  Transmission Date: 20111010
  Serious: Yes (Hospitalization, Other)
  Sender: FDA-Public Use
  Company Number: US-BRISTOL-MYERS SQUIBB COMPANY-15741036

PATIENT
  Age: 63 Year
  Sex: Female
  Weight: 47 kg

DRUGS (8)
  1. ARAVA [Concomitant]
  2. ENBREL [Concomitant]
  3. SYMBICORT [Concomitant]
  4. ORENCIA [Suspect]
     Indication: RHEUMATOID ARTHRITIS
     Dosage: INTERRUPTED IN SEP-2010; RESTARTED IN MAY-2011
     Dates: start: 20090901
  5. PLAQUENIL [Concomitant]
  6. CLOZAPINE [Concomitant]
  7. SPIRIVA [Concomitant]
  8. PROTONIX [Concomitant]

REACTIONS (4)
  - PANCREATITIS [None]
  - ARTHROSCOPIC SURGERY [None]
  - GASTRITIS [None]
  - INTERSTITIAL LUNG DISEASE [None]
